FAERS Safety Report 14732964 (Version 2)
Quarter: 2018Q2

REPORT INFORMATION
  Report Type: Spontaneous
  Country: DE (occurrence: DE)
  Receive Date: 20180409
  Receipt Date: 20180614
  Transmission Date: 20180711
  Serious: Yes (Death, Hospitalization, Other)
  Sender: FDA-Public Use
  Company Number: DE-MERCK KGAA-2045333

PATIENT
  Age: 80 Year
  Sex: Female
  Weight: 56.1 kg

DRUGS (17)
  1. DOCETAXEL. [Suspect]
     Active Substance: DOCETAXEL
  2. MIRTAZAPINE. [Suspect]
     Active Substance: MIRTAZAPINE
     Route: 048
     Dates: start: 20050630
  3. BISOHEXAL [Concomitant]
     Active Substance: BISOPROLOL FUMARATE
  4. TORASEMIDE [Suspect]
     Active Substance: TORSEMIDE
  5. NOVOTHYROX [Suspect]
     Active Substance: LEVOTHYROXINE SODIUM
     Indication: HYPOTHYROIDISM
     Route: 048
     Dates: start: 20060630
  6. PERTUZUMAB. [Suspect]
     Active Substance: PERTUZUMAB
     Route: 042
     Dates: start: 20170817
  7. LETROZOLE. [Suspect]
     Active Substance: LETROZOLE
     Route: 048
     Dates: start: 20170916
  8. PACLITAXEL. [Suspect]
     Active Substance: PACLITAXEL
     Route: 042
     Dates: start: 20170505, end: 20170810
  9. XARELTO [Concomitant]
     Active Substance: RIVAROXABAN
  10. HERCEPTIN [Suspect]
     Active Substance: TRASTUZUMAB
     Route: 042
     Dates: start: 20170505
  11. HERCEPTIN [Suspect]
     Active Substance: TRASTUZUMAB
     Route: 042
     Dates: start: 20180103
  12. DOXEPIN [Concomitant]
     Active Substance: DOXEPIN
     Dates: start: 20050630
  13. PERTUZUMAB. [Suspect]
     Active Substance: PERTUZUMAB
     Route: 042
     Dates: start: 20170505
  14. TRASTUZUMAB. [Suspect]
     Active Substance: TRASTUZUMAB
     Route: 042
     Dates: start: 20170505
  15. TRASTUZUMAB. [Suspect]
     Active Substance: TRASTUZUMAB
     Route: 042
     Dates: start: 20180103
  16. XGEVA [Suspect]
     Active Substance: DENOSUMAB
     Route: 058
     Dates: start: 20170421
  17. HERCEPTIN [Suspect]
     Active Substance: TRASTUZUMAB
     Dates: start: 20170505

REACTIONS (10)
  - Cystitis [Recovered/Resolved]
  - Ill-defined disorder [Recovered/Resolved]
  - Metastases to bone [Unknown]
  - Left ventricular dysfunction [Not Recovered/Not Resolved]
  - Metastases to liver [Unknown]
  - Dysaesthesia [Recovered/Resolved]
  - Asthenia [Fatal]
  - Fatigue [Not Recovered/Not Resolved]
  - Nausea [Recovered/Resolved]
  - Mastectomy [Recovered/Resolved]

NARRATIVE: CASE EVENT DATE: 20170421
